FAERS Safety Report 13464097 (Version 1)
Quarter: 2017Q2

REPORT INFORMATION
  Report Type: Spontaneous
  Country: US (occurrence: US)
  Receive Date: 20170420
  Receipt Date: 20170420
  Transmission Date: 20170830
  Serious: Yes (Hospitalization, Other)
  Sender: FDA-Public Use
  Company Number: US-ROCHE-718984

PATIENT
  Age: 18 Year
  Sex: Female
  Weight: 104.8 kg

DRUGS (3)
  1. ACCUTANE [Suspect]
     Active Substance: ISOTRETINOIN
     Route: 048
     Dates: start: 20051012, end: 2006
  2. ACCUTANE [Suspect]
     Active Substance: ISOTRETINOIN
     Indication: ACNE
     Route: 048
  3. ACCUTANE [Suspect]
     Active Substance: ISOTRETINOIN
     Route: 048

REACTIONS (7)
  - Inflammatory bowel disease [Unknown]
  - Gastrointestinal injury [Unknown]
  - Dry skin [Unknown]
  - Crohn^s disease [Unknown]
  - Lip dry [Unknown]
  - Colitis ulcerative [Unknown]
  - Blood triglycerides increased [Unknown]

NARRATIVE: CASE EVENT DATE: 20050822
